FAERS Safety Report 20869666 (Version 1)
Quarter: 2022Q2

REPORT INFORMATION
  Report Type: Spontaneous
  Country: FR (occurrence: None)
  Receive Date: 20220525
  Receipt Date: 20220525
  Transmission Date: 20220720
  Serious: Yes (Death)
  Sender: FDA-Public Use
  Company Number: FR-Unichem Pharmaceuticals (USA) Inc-UCM202205-000450

PATIENT
  Age: 32 Year
  Sex: Female

DRUGS (1)
  1. TRAMADOL HYDROCHLORIDE [Suspect]
     Active Substance: TRAMADOL HYDROCHLORIDE
     Indication: Overdose
     Dosage: 9000 MG

REACTIONS (7)
  - Brain death [Fatal]
  - Brain injury [Fatal]
  - Encephalopathy [Fatal]
  - Eyelid myoclonus [Fatal]
  - Coma [Fatal]
  - Mydriasis [Fatal]
  - Overdose [Fatal]
